FAERS Safety Report 9767686 (Version 1)
Quarter: 2013Q4

REPORT INFORMATION
  Report Type: Spontaneous
  Country: US (occurrence: US)
  Receive Date: 20131217
  Receipt Date: 20131217
  Transmission Date: 20140711
  Serious: No
  Sender: FDA-Public Use
  Company Number: US-009507513-1312USA005724

PATIENT
  Sex: Female

DRUGS (3)
  1. MIRALAX [Suspect]
     Indication: PRODUCT USED FOR UNKNOWN INDICATION
     Dosage: UNK UNK, UNKNOWN
     Route: 048
     Dates: start: 20131125
  2. MIRALAX [Suspect]
     Dosage: UNK, UNKNOWN
     Route: 048
     Dates: start: 20131126
  3. MIRALAX [Suspect]
     Dosage: UNK UNK, QD
     Route: 048
     Dates: start: 2012

REACTIONS (3)
  - Gastrointestinal disorder [Unknown]
  - Incorrect drug administration duration [Unknown]
  - Product physical consistency issue [Unknown]
